FAERS Safety Report 8781130 (Version 1)
Quarter: 2012Q4

REPORT INFORMATION
  Report Type: 
  Country: TH (occurrence: TH)
  Receive Date: 20120913
  Receipt Date: 20120913
  Transmission Date: 20130627
  Serious: Yes (Death)
  Sender: FDA-Public Use
  Company Number: PHHY2012TH079234

PATIENT
  Sex: Male

DRUGS (2)
  1. GLIVEC [Suspect]
     Indication: CHRONIC MYELOID LEUKAEMIA
     Dosage: 600 mg,
     Route: 048
     Dates: start: 20100118
  2. GLIVEC [Suspect]
     Dosage: 800 mg,
     Route: 048
     Dates: start: 20101101

REACTIONS (1)
  - Death [Fatal]
